FAERS Safety Report 13406803 (Version 1)
Quarter: 2017Q2

REPORT INFORMATION
  Report Type: Spontaneous
  Country: DE (occurrence: DE)
  Receive Date: 20170405
  Receipt Date: 20170405
  Transmission Date: 20170830
  Serious: Yes (Other)
  Sender: FDA-Public Use
  Company Number: DE-BAYER-2017-062046

PATIENT
  Age: 44 Year
  Sex: Female
  Weight: 63 kg

DRUGS (1)
  1. MIRENA [Suspect]
     Active Substance: LEVONORGESTREL
     Indication: CONTRACEPTION
     Dosage: 20 MCG/24HR, CONT
     Route: 015
     Dates: start: 20160108, end: 20170215

REACTIONS (7)
  - Photophobia [Recovered/Resolved]
  - Neck pain [Not Recovered/Not Resolved]
  - Vertigo [Recovered/Resolved]
  - Angina pectoris [None]
  - Migraine with aura [Recovered/Resolved]
  - Rash [None]
  - Bundle branch block right [None]

NARRATIVE: CASE EVENT DATE: 201605
